FAERS Safety Report 8853703 (Version 3)
Quarter: 2012Q4

REPORT INFORMATION
  Report Type: 
  Country: FR (occurrence: FR)
  Receive Date: 20121022
  Receipt Date: 20121126
  Transmission Date: 20130627
  Serious: Yes (Other)
  Sender: FDA-Public Use
  Company Number: FR-ASTRAZENECA-2012SE79238

PATIENT
  Age: 20088 Day
  Sex: Female

DRUGS (2)
  1. SYMBICORT TBH [Suspect]
     Dosage: 400/12 UG PER DOSE, UNKNOWN FREQUENCY
     Route: 055
  2. SYMBICORT TBH [Suspect]
     Dosage: 320/9 MCG PER DOSE, UNKNOWN
     Route: 055

REACTIONS (1)
  - Drug ineffective [Recovered/Resolved]
